FAERS Safety Report 4975278-6 (Version None)
Quarter: 2006Q2

REPORT INFORMATION
  Report Type: 
  Country: None (occurrence: None)
  Receive Date: 20060418
  Receipt Date: 20051003
  Transmission Date: 20061013
  Serious: Yes (Hospitalization, Disabling, Other)
  Sender: FDA-Public Use
  Company Number: US-MERCK-0510USA01031

PATIENT
  Age: 61 Year
  Sex: Male
  Weight: 120 kg

DRUGS (2)
  1. VIOXX [Suspect]
     Indication: ARTHRITIS
     Route: 048
     Dates: start: 20000101, end: 20040101
  2. NAPROXEN [Concomitant]
     Route: 065

REACTIONS (35)
  - AMAUROSIS FUGAX [None]
  - ANGINA PECTORIS [None]
  - ANXIETY [None]
  - ASTHENIA [None]
  - CARDIAC MURMUR [None]
  - CAROTID ARTERY OCCLUSION [None]
  - CAROTID ARTERY STENOSIS [None]
  - CATARACT [None]
  - CHEST PAIN [None]
  - DEPRESSION [None]
  - DIABETES MELLITUS [None]
  - DIZZINESS [None]
  - DRUG INEFFECTIVE [None]
  - DYSPEPSIA [None]
  - DYSPNOEA [None]
  - DYSPNOEA EXERTIONAL [None]
  - FATIGUE [None]
  - GOUT [None]
  - HYPERCHOLESTEROLAEMIA [None]
  - HYPERTENSION [None]
  - HYPERTENSIVE NEPHROPATHY [None]
  - HYPERURICAEMIA [None]
  - MENTAL DISORDER [None]
  - OEDEMA PERIPHERAL [None]
  - OSTEOARTHRITIS [None]
  - OVERWEIGHT [None]
  - PAIN [None]
  - PROTEINURIA [None]
  - RADICULOPATHY [None]
  - RENAL FAILURE [None]
  - RETINAL VEIN OCCLUSION [None]
  - SCIATICA [None]
  - TENDONITIS [None]
  - TRANSIENT ISCHAEMIC ATTACK [None]
  - WEIGHT DECREASED [None]
